FAERS Safety Report 18643957 (Version 1)
Quarter: 2020Q4

REPORT INFORMATION
  Report Type: Spontaneous
  Country: US (occurrence: US)
  Receive Date: 20201221
  Receipt Date: 20201221
  Transmission Date: 20210114
  Serious: Yes (Other)
  Sender: FDA-Public Use
  Company Number: US-EPIC PHARMA LLC-2020EPC00379

PATIENT
  Age: 50 Year
  Sex: Female
  Weight: 70.3 kg

DRUGS (6)
  1. MORPHINE SULFATE. [Suspect]
     Active Substance: MORPHINE SULFATE
     Indication: ANAESTHESIA
     Dosage: 150 ?G AT 23:08
  2. BUPIVACAINE. [Concomitant]
     Active Substance: BUPIVACAINE
     Indication: ANAESTHESIA
     Dosage: 12 MG
  3. CEFAZOLIN [Concomitant]
     Active Substance: CEFAZOLIN
     Indication: ANTIBIOTIC PROPHYLAXIS
     Dosage: 2 G
     Route: 042
  4. FENTANYL. [Concomitant]
     Active Substance: FENTANYL
     Dosage: 15 ?G
  5. CLONIDINE. [Concomitant]
     Active Substance: CLONIDINE
     Indication: ANAESTHESIA
     Dosage: 30 ?G
  6. PHENYLEPHRINE [Concomitant]
     Active Substance: PHENYLEPHRINE HYDROCHLORIDE
     Indication: BLOOD PRESSURE MEASUREMENT
     Dosage: 50 ?G/ML
     Route: 042

REACTIONS (1)
  - Hypothermia [Recovered/Resolved]
